FAERS Safety Report 4619371-6 (Version None)
Quarter: 2005Q2

REPORT INFORMATION
  Report Type: 
  Country: None (occurrence: None)
  Receive Date: 20050325
  Receipt Date: 20050107
  Transmission Date: 20051028
  Serious: Yes (Hospitalization)
  Sender: FDA-Public Use
  Company Number: 0205001

PATIENT
  Age: 63 Year
  Sex: Female

DRUGS (1)
  1. DEPODUR [Suspect]

REACTIONS (3)
  - HYPOTENSION [None]
  - NAUSEA [None]
  - PRURITUS [None]
